FAERS Safety Report 5161710-4 (Version None)
Quarter: 2006Q4

REPORT INFORMATION
  Report Type: 
  Country: None (occurrence: None)
  Receive Date: 20061130
  Receipt Date: 20061117
  Transmission Date: 20070319
  Serious: Yes (Hospitalization)
  Sender: FDA-Public Use
  Company Number: IT-ELI_LILLY_AND_COMPANY-IT200611004299

PATIENT
  Age: 80 Year
  Sex: Female

DRUGS (4)
  1. FORTEO [Suspect]
     Indication: OSTEOPOROSIS
     Dosage: 20 UG, DAILY (1/D)
     Route: 058
     Dates: start: 20061012, end: 20061019
  2. ENALAPRIL MALEATE [Concomitant]
     Dosage: 20 MG, UNK
  3. AMIODAR [Concomitant]
     Dosage: 200 MG, UNK
     Route: 048
  4. WARFARIN SODIUM [Concomitant]

REACTIONS (1)
  - CHOLECYSTITIS ACUTE [None]
